FAERS Safety Report 21594375 (Version 2)
Quarter: 2023Q1

REPORT INFORMATION
  Report Type: Spontaneous
  Country: US (occurrence: None)
  Receive Date: 20221115
  Receipt Date: 20230321
  Transmission Date: 20230417
  Serious: No
  Sender: FDA-Public Use
  Company Number: US-ROCHE-3181963

PATIENT
  Age: 83 Year
  Sex: Female
  Weight: 47.216 kg

DRUGS (6)
  1. VABYSMO [Suspect]
     Active Substance: FARICIMAB-SVOA
     Indication: Neovascular age-related macular degeneration
     Route: 031
     Dates: start: 202206, end: 202208
  2. EYLEA [Concomitant]
     Active Substance: AFLIBERCEPT
     Indication: Neovascular age-related macular degeneration
     Route: 031
     Dates: start: 202208
  3. FLUOCINONIDE [Concomitant]
     Active Substance: FLUOCINONIDE
     Indication: Pruritus
     Dosage: APPLY 1 DROP TO SCALP ONCE A DAY AND RUB
     Route: 061
     Dates: start: 20220902
  4. SYSTANE (HYPROMELLOSE 2910 (4000 MPA.S)) [Concomitant]
     Active Substance: HYPROMELLOSE 2910 (4000 MPA.S)
     Indication: Dry eye
     Route: 047
     Dates: start: 20220901
  5. LEVOTHYROXINE [Concomitant]
     Active Substance: LEVOTHYROXINE
     Dosage: EVERY MORNING AN HOUR BEFORE BREAKFAST
     Route: 048
  6. REFRESH TEARS [Concomitant]
     Active Substance: CARBOXYMETHYLCELLULOSE SODIUM
     Indication: Dry eye
     Route: 047

REACTIONS (4)
  - Pruritus [Recovering/Resolving]
  - Dry eye [Recovered/Resolved]
  - Oral herpes [Recovering/Resolving]
  - Chapped lips [Not Recovered/Not Resolved]

NARRATIVE: CASE EVENT DATE: 20220601
